FAERS Safety Report 4844612-X (Version None)
Quarter: 2005Q4

REPORT INFORMATION
  Report Type: 
  Country: None (occurrence: None)
  Receive Date: 20051125
  Receipt Date: 20051115
  Transmission Date: 20060501
  Serious: Yes (Other)
  Sender: FDA-Public Use
  Company Number: 2005157158

PATIENT
  Age: 74 Year
  Sex: Female

DRUGS (6)
  1. NORVASC [Suspect]
     Indication: ILL-DEFINED DISORDER
     Dosage: 10 MG (10 MG, 1 IN 1 D), ORAL
     Route: 048
     Dates: start: 20050701, end: 20050801
  2. ATENOLOL [Suspect]
     Indication: ILL-DEFINED DISORDER
     Dosage: 100 MG (100 MG, 1 IN 1 D), ORAL
     Route: 048
  3. ATORVASTATIN CALCIUM [Suspect]
     Indication: ILL-DEFINED DISORDER
     Dosage: 10 MG (10 MG, 1 IN 1 D), ORAL
     Route: 048
  4. DIOVAN HCT [Suspect]
     Indication: ILL-DEFINED DISORDER
     Dosage: 160 M (UNIT DOSE: 160/12.5 MG), ORAL
     Route: 048
     Dates: start: 20030101
  5. EFFEXOR [Concomitant]
  6. CONDROSULF (CHONDROITIN SULFATE SODIUM) [Concomitant]

REACTIONS (1)
  - PSEUDO LYMPHOMA [None]
